FAERS Safety Report 5152357-4 (Version None)
Quarter: 2006Q4

REPORT INFORMATION
  Report Type: 
  Country: None (occurrence: None)
  Receive Date: 20061116
  Receipt Date: 20061027
  Transmission Date: 20070319
  Serious: Yes (Hospitalization)
  Sender: FDA-Public Use
  Company Number: DE-PURDUE-DEU_2006_0002599

PATIENT
  Age: 66 Year
  Sex: Female
  Weight: 67 kg

DRUGS (10)
  1. OXY/NALOX CR TABS VS OXY CR TABS [Suspect]
     Indication: BACK PAIN
     Dosage: 60 MG, DAILY
     Route: 048
     Dates: start: 20060626, end: 20060918
  2. AMITRIPTYLINE HCL [Concomitant]
  3. VERPAMIL [Concomitant]
  4. METOHEXAL [Concomitant]
  5. EFEROX ^HEXAL^ [Concomitant]
  6. THIAZID-COMP ^WOLFF^ [Concomitant]
  7. BENZBROMARONE [Concomitant]
  8. METFORMIN [Concomitant]
  9. FURORESE [Concomitant]
  10. EMBOLEX [Concomitant]

REACTIONS (3)
  - CEREBRAL THROMBOSIS [None]
  - CEREBROVASCULAR ACCIDENT [None]
  - TACHYCARDIA [None]
